FAERS Safety Report 6073648-9 (Version None)
Quarter: 2009Q1

REPORT INFORMATION
  Report Type: 
  Country: None (occurrence: None)
  Receive Date: 20090211
  Receipt Date: 20090204
  Transmission Date: 20090719
  Serious: Yes (Other)
  Sender: FDA-Public Use
  Company Number: US-KINGPHARMUSA00001-K200900116

PATIENT

DRUGS (2)
  1. THROMBIN NOS [Suspect]
     Indication: HAEMOSTASIS
     Dosage: 2000 U, SINGLE
     Route: 058
     Dates: start: 20090204, end: 20090204
  2. MARCAINE WITH EPINEPHRINE          /00879801/ [Concomitant]
     Dosage: UNK
     Route: 058
     Dates: start: 20090204, end: 20090204

REACTIONS (2)
  - INCORRECT ROUTE OF DRUG ADMINISTRATION [None]
  - NO ADVERSE EVENT [None]
